FAERS Safety Report 8581811-8 (Version None)
Quarter: 2012Q3

REPORT INFORMATION
  Report Type: 
  Country: None (occurrence: None)
  Receive Date: 20120809
  Receipt Date: 20120804
  Transmission Date: 20120928
  Serious: Yes (Other)
  Sender: FDA-Public Use
  Company Number: PHEH2012US015373

PATIENT
  Sex: Female

DRUGS (1)
  1. EXELON [Suspect]
     Dosage: 4.6 MG, UNK
     Route: 062

REACTIONS (3)
  - NECK PAIN [None]
  - MUSCULOSKELETAL PAIN [None]
  - DEMENTIA [None]
